FAERS Safety Report 9949885 (Version 1)
Quarter: 2014Q1

REPORT INFORMATION
  Report Type: Spontaneous
  Country: US (occurrence: US)
  Receive Date: 20140304
  Receipt Date: 20140304
  Transmission Date: 20141002
  Serious: No
  Sender: FDA-Public Use
  Company Number: US-TEVA-416164USA

PATIENT
  Sex: Female

DRUGS (1)
  1. METHYLPREDNISOLONE [Suspect]
     Dosage: 80 MG/5ML
     Dates: start: 20130620

REACTIONS (3)
  - Injection site erythema [Unknown]
  - Injection site inflammation [Unknown]
  - Urticaria [Unknown]
